FAERS Safety Report 9058011 (Version 1)
Quarter: 2013Q1

REPORT INFORMATION
  Report Type: Spontaneous
  Country: US (occurrence: None)
  Receive Date: 20130204
  Receipt Date: 20130204
  Transmission Date: 20140127
  Serious: Yes (Death)
  Sender: FDA-Public Use
  Company Number: None

PATIENT
  Age: 54 None
  Sex: Female

DRUGS (2)
  1. XELODA [Suspect]
     Indication: OESOPHAGEAL CARCINOMA
     Dosage: BID X1WK THEN 1 WK OFF
     Route: 048
     Dates: start: 20121122, end: 20130114
  2. PROCRIT [Suspect]
     Route: 058
     Dates: start: 20120821, end: 20121001

REACTIONS (1)
  - Death [None]
